FAERS Safety Report 8078733-8 (Version None)
Quarter: 2012Q1

REPORT INFORMATION
  Report Type: 
  Country: None (occurrence: None)
  Receive Date: 20120124
  Receipt Date: 20120112
  Transmission Date: 20120608
  Serious: Yes (Other)
  Sender: FDA-Public Use
  Company Number: TRP_07815_2011

PATIENT
  Age: 32 Year
  Sex: Female
  Weight: 57.6068 kg

DRUGS (3)
  1. RIBAVIRIN [Suspect]
     Indication: HEPATITIS C
     Dosage: 800 MILLIGRAM DAILY, ORAL
     Route: 048
     Dates: start: 20100511, end: 20101118
  2. MULTI-VITAMINS [Concomitant]
  3. PEGASYS [Suspect]
     Indication: HEPATITIS C
     Dosage: 180 MICROGRAM, 1 IN 1 WEEK, INTRAMUSCULAR
     Route: 030
     Dates: start: 20100511, end: 20101118

REACTIONS (5)
  - CHROMOSOME ANALYSIS ABNORMAL [None]
  - HIGH RISK PREGNANCY [None]
  - BLOOD 1,25-DIHYDROXYCHOLECALCIFEROL DECREASED [None]
  - MATERNAL EXPOSURE DURING PREGNANCY [None]
  - DYSPNOEA [None]
